FAERS Safety Report 6303512-9 (Version None)
Quarter: 2009Q3

REPORT INFORMATION
  Report Type: 
  Country: None (occurrence: None)
  Receive Date: 20090810
  Receipt Date: 20090730
  Transmission Date: 20100115
  Serious: Yes (Other)
  Sender: FDA-Public Use
  Company Number: US-JNJFOC-20090707275

PATIENT
  Sex: Male

DRUGS (6)
  1. PLACEBO [Suspect]
     Route: 058
  2. PLACEBO (GOLIMUMAB) [Suspect]
     Route: 058
  3. PLACEBO [Suspect]
     Indication: COLITIS ULCERATIVE
     Route: 058
  4. ASACOL [Concomitant]
     Indication: COLITIS ULCERATIVE
     Route: 048
  5. IMURAN [Suspect]
     Indication: COLITIS ULCERATIVE
     Route: 048
  6. TOPROL-XL [Suspect]
     Route: 048

REACTIONS (1)
  - NERVOUS SYSTEM DISORDER [None]
